FAERS Safety Report 10527073 (Version 2)
Quarter: 2014Q4

REPORT INFORMATION
  Report Type: Spontaneous
  Country: US (occurrence: None)
  Receive Date: 20141016
  Receipt Date: 20141030
  Transmission Date: 20150528
  Serious: Yes (Hospitalization)
  Sender: FDA-Public Use
  Company Number: 2014AP005078

PATIENT
  Age: 48 Year
  Sex: Female
  Weight: 64.4 kg

DRUGS (7)
  1. FOLIC ACID. [Concomitant]
     Active Substance: FOLIC ACID
  2. XARELTO [Concomitant]
     Active Substance: RIVAROXABAN
  3. POTASSIUM CHLORIDE. [Concomitant]
     Active Substance: POTASSIUM CHLORIDE
  4. FERRIPROX [Suspect]
     Active Substance: DEFERIPRONE
     Indication: SICKLE CELL ANAEMIA
     Route: 048
     Dates: start: 20131024, end: 20140926
  5. HYDREA [Concomitant]
     Active Substance: HYDROXYUREA
  6. PERCOCET (OXYCODONE HYDROCHLORIDE, OXYCODONE  TEREPHTHALATE, PARACETAMOL) [Concomitant]
  7. LOPRESSOR [Concomitant]
     Active Substance: METOPROLOL TARTRATE

REACTIONS (4)
  - Abdominal discomfort [None]
  - Nausea [None]
  - Sickle cell anaemia with crisis [None]
  - Platelet count decreased [None]

NARRATIVE: CASE EVENT DATE: 201409
